FAERS Safety Report 20406741 (Version 1)
Quarter: 2022Q1

REPORT INFORMATION
  Report Type: Spontaneous
  Country: US (occurrence: None)
  Receive Date: 20220131
  Receipt Date: 20220131
  Transmission Date: 20220424
  Serious: Yes (Hospitalization)
  Sender: FDA-Public Use
  Company Number: None

PATIENT
  Age: 73 Year
  Sex: Male

DRUGS (22)
  1. TACROLIMUS [Suspect]
     Active Substance: TACROLIMUS
     Indication: Renal transplant
     Dosage: FREQUENCY : TWICE A DAY;?
     Dates: start: 20200618
  2. MYCOPHENOLIC ACID [Suspect]
     Active Substance: MYCOPHENOLIC ACID
     Indication: Transplant
     Dosage: FREQUENCY : TWICE A DAY;?
     Dates: start: 20200618
  3. ACYCLOVIR TAB [Concomitant]
  4. ATORVASTATIN [Concomitant]
     Active Substance: ATORVASTATIN
  5. CALCITRIOL CAP [Concomitant]
  6. FLOMAX CAP [Concomitant]
  7. FLONASE SPR [Concomitant]
  8. HUMALOG KWIK INJ [Concomitant]
  9. IMIPRAM PAM CAP [Concomitant]
  10. LANTUS SOLOS INJ [Concomitant]
  11. LOSARTAN POT TAB [Concomitant]
  12. MAG OXIDE TAB [Concomitant]
  13. METOPROL SUC TAB ER [Concomitant]
  14. MYCOPHENOLAT TAB [Concomitant]
  15. MYCOPHENOLATE MOFETIL [Concomitant]
     Active Substance: MYCOPHENOLATE MOFETIL
  16. NIFEDIPINE TAB ER [Concomitant]
  17. OMEPRAZOLE TAB [Concomitant]
  18. PREDNISONE [Concomitant]
     Active Substance: PREDNISONE
  19. TACROLIMUS [Concomitant]
     Active Substance: TACROLIMUS
  20. TACROLIMUS [Concomitant]
     Active Substance: TACROLIMUS
  21. TACROLIMUS A [Concomitant]
  22. VITAMIN D CAP [Concomitant]

REACTIONS (1)
  - Cholecystectomy [None]

NARRATIVE: CASE EVENT DATE: 20220117
